FAERS Safety Report 19498016 (Version 1)
Quarter: 2021Q3

REPORT INFORMATION
  Report Type: Spontaneous
  Country: US (occurrence: US)
  Receive Date: 20210706
  Receipt Date: 20210706
  Transmission Date: 20211014
  Serious: Yes (Hospitalization)
  Sender: FDA-Public Use
  Company Number: US-INDIVIOR EUROPE LIMITED-INDV-130239-2021

PATIENT

DRUGS (3)
  1. SUBUTEX [Suspect]
     Active Substance: BUPRENORPHINE HYDROCHLORIDE
     Indication: DRUG WITHDRAWAL SYNDROME
     Dosage: 24 MILLIGRAM, UNKNOWN
     Route: 060
  2. SUBUTEX [Suspect]
     Active Substance: BUPRENORPHINE HYDROCHLORIDE
     Indication: DRUG USE DISORDER
     Dosage: UNK
  3. SUBUTEX [Suspect]
     Active Substance: BUPRENORPHINE HYDROCHLORIDE
     Dosage: 0.3 MILLIGRAM, UNKNOWN
     Route: 030

REACTIONS (7)
  - Wrong technique in product usage process [Unknown]
  - Prescribed overdose [Unknown]
  - Stress cardiomyopathy [Recovered/Resolved]
  - Substance abuse [Unknown]
  - Drug withdrawal syndrome [Recovering/Resolving]
  - Product use issue [Recovered/Resolved]
  - Intentional product use issue [Unknown]
